FAERS Safety Report 5990002-6 (Version None)
Quarter: 2008Q4

REPORT INFORMATION
  Report Type: 
  Country: None (occurrence: None)
  Receive Date: 20081209
  Receipt Date: 20081209
  Transmission Date: 20090506
  Serious: Yes (Other)
  Sender: FDA-Public Use
  Company Number: None

PATIENT
  Sex: Female
  Weight: 95.2554 kg

DRUGS (1)
  1. PROVIGIL [Suspect]
     Indication: NARCOLEPSY
     Dosage: 200MG 1 X DAILY PO
     Route: 048
     Dates: start: 20081110, end: 20081206

REACTIONS (8)
  - CHEST PAIN [None]
  - CHILLS [None]
  - FEELING ABNORMAL [None]
  - MIGRAINE [None]
  - PHOTOPHOBIA [None]
  - PRURITUS [None]
  - PYREXIA [None]
  - TREATMENT NONCOMPLIANCE [None]
